FAERS Safety Report 12753098 (Version 2)
Quarter: 2016Q3

REPORT INFORMATION
  Report Type: Spontaneous
  Country: None (occurrence: IT)
  Receive Date: 20160916
  Receipt Date: 20160923
  Transmission Date: 20161109
  Serious: Yes (Hospitalization)
  Sender: FDA-Public Use
  Company Number: IT-TEVA-691165ACC

PATIENT
  Age: 55 Year
  Sex: Female

DRUGS (2)
  1. LETROZOLO [Suspect]
     Active Substance: LETROZOLE
     Indication: BREAST CANCER
     Dosage: 2.5 MILLIGRAM DAILY;
     Route: 048
     Dates: start: 20120701, end: 20121001
  2. ANASTROZOLO [Suspect]
     Active Substance: ANASTROZOLE
     Indication: BREAST CANCER
     Dates: start: 20130301

REACTIONS (6)
  - Dyspnoea [Unknown]
  - Immune-mediated necrotising myopathy [Unknown]
  - Interstitial lung disease [Unknown]
  - Hypocapnia [Unknown]
  - Asthenia [Unknown]
  - Antisynthetase syndrome [Unknown]
